FAERS Safety Report 9247960 (Version 1)
Quarter: 2013Q1

REPORT INFORMATION
  Report Type: Spontaneous
  Country: US (occurrence: None)
  Receive Date: 20130305
  Receipt Date: 20130305
  Transmission Date: 20140127
  Serious: Yes (Other)
  Sender: FDA-Public Use
  Company Number: 163-21880-12093345

PATIENT
  Age: 73 Year
  Sex: Male
  Weight: 87.09 kg

DRUGS (16)
  1. REVLIMID [Suspect]
     Indication: PLASMA CELL MYELOMA
     Dosage: 25 MG, 21 IN 21 D, PO?TEMPORARILY INTERRUPTED
     Route: 048
     Dates: start: 20100904
  2. SINGULAIR [Concomitant]
  3. VALACYCLOVIR (VALACICLOVIR) [Concomitant]
  4. DEXAMETHASONE (DEXAMETHASONE) [Concomitant]
  5. LOVENOX (HEPARIN-FRACTION, SODIUM SALT) [Concomitant]
  6. NASONEX (MOMETASONE FUROATE) [Concomitant]
  7. PENICILLIN (BENZYLPENICILLIN POTASSIUM) [Concomitant]
  8. AUGMENTIN (CLAVULIN) [Concomitant]
  9. AZITHROMYCIN (AZITHROMYCIN) [Concomitant]
  10. DIGOXIN (DIGOXIN) [Concomitant]
  11. CHLORHEXIDINE (CHLORHEXIDINE) [Concomitant]
  12. ALPRAZOLAM (ALPRAZOLAM) [Concomitant]
  13. WARFARIN (WARFARIN) [Concomitant]
  14. VICODIN (VICODIN) [Concomitant]
  15. ENOXAPARIN (ENOXAPARIN) [Concomitant]
  16. VITAMIN D (ERGOCALCIFEROL) [Concomitant]

REACTIONS (1)
  - Infection [None]
